FAERS Safety Report 8963153 (Version 1)
Quarter: 2012Q4

REPORT INFORMATION
  Report Type: 
  Country: RU (occurrence: RU)
  Receive Date: 20121213
  Receipt Date: 20121213
  Transmission Date: 20130627
  Serious: Yes (Other)
  Sender: FDA-Public Use
  Company Number: RU-ASTRAZENECA-2012SE91770

PATIENT
  Sex: Male

DRUGS (5)
  1. BRILINTA [Suspect]
     Indication: PERCUTANEOUS CORONARY INTERVENTION
     Route: 048
     Dates: start: 2012, end: 201211
  2. ASPIRIN [Concomitant]
     Route: 048
     Dates: end: 201211
  3. ASPIRIN [Concomitant]
     Route: 048
     Dates: start: 201211
  4. WARFARIN [Concomitant]
     Indication: ATRIAL FIBRILLATION
     Route: 048
  5. WARFARIN [Concomitant]
     Indication: ATRIAL FIBRILLATION
     Route: 048

REACTIONS (3)
  - International normalised ratio increased [Unknown]
  - Haematoma [Unknown]
  - Off label use [Recovered/Resolved]
